FAERS Safety Report 15289486 (Version 1)
Quarter: 2018Q3

REPORT INFORMATION
  Report Type: Spontaneous
  Country: FR (occurrence: FR)
  Receive Date: 20180817
  Receipt Date: 20180817
  Transmission Date: 20181010
  Serious: Yes (Other)
  Sender: FDA-Public Use
  Company Number: PHHY2018FR072223

PATIENT
  Age: 64 Year
  Sex: Female

DRUGS (1)
  1. TERBINAFINE. [Suspect]
     Active Substance: TERBINAFINE
     Indication: ONYCHOMYCOSIS
     Dosage: 250 G, QD
     Route: 048
     Dates: start: 20180601, end: 20180622

REACTIONS (3)
  - Oliguria [Not Recovered/Not Resolved]
  - Rash [Not Recovered/Not Resolved]
  - Mucosal inflammation [Not Recovered/Not Resolved]

NARRATIVE: CASE EVENT DATE: 20180620
